FAERS Safety Report 11947792 (Version 1)
Quarter: 2016Q1

REPORT INFORMATION
  Report Type: Report from Study
  Country: US (occurrence: US)
  Receive Date: 20160125
  Receipt Date: 20160125
  Transmission Date: 20160526
  Serious: No
  Sender: FDA-Public Use
  Company Number: US-ABBVIE-12P-163-0979883-00

PATIENT
  Sex: Male
  Weight: 99.88 kg

DRUGS (9)
  1. VERAPAMIL [Concomitant]
     Active Substance: VERAPAMIL HYDROCHLORIDE
     Indication: HYPERTENSION
     Dosage: DAILY
  2. LISINOPRIL. [Concomitant]
     Active Substance: LISINOPRIL
     Indication: HYPERTENSION
     Dosage: DAILY
  3. HUMIRA [Suspect]
     Active Substance: ADALIMUMAB
     Indication: PSORIATIC ARTHROPATHY
     Route: 058
     Dates: start: 2012
  4. ZANTAC [Concomitant]
     Active Substance: RANITIDINE HYDROCHLORIDE
     Indication: GASTROOESOPHAGEAL REFLUX DISEASE
  5. METHOTREXATE [Concomitant]
     Active Substance: METHOTREXATE
     Indication: PSORIATIC ARTHROPATHY
  6. HUMIRA [Suspect]
     Active Substance: ADALIMUMAB
     Indication: PSORIATIC ARTHROPATHY
     Route: 058
     Dates: start: 2005, end: 2005
  7. FOLIC ACID. [Concomitant]
     Active Substance: FOLIC ACID
     Indication: NEOPLASM SKIN
  8. HUMIRA [Suspect]
     Active Substance: ADALIMUMAB
     Route: 058
     Dates: start: 2011, end: 2012
  9. ZYRTEC [Concomitant]
     Active Substance: CETIRIZINE HYDROCHLORIDE
     Indication: SEASONAL ALLERGY

REACTIONS (12)
  - Nausea [Not Recovered/Not Resolved]
  - Pain [Recovered/Resolved]
  - Psoriatic arthropathy [Recovered/Resolved]
  - Pain [Not Recovered/Not Resolved]
  - Influenza [Recovered/Resolved]
  - Drug ineffective [Not Recovered/Not Resolved]
  - Chills [Recovered/Resolved]
  - Chills [Not Recovered/Not Resolved]
  - Pyrexia [Recovered/Resolved]
  - Psoriasis [Recovered/Resolved]
  - Injection site pain [Not Recovered/Not Resolved]
  - Nausea [Recovered/Resolved]

NARRATIVE: CASE EVENT DATE: 2005
